FAERS Safety Report 20919418 (Version 1)
Quarter: 2022Q2

REPORT INFORMATION
  Report Type: Spontaneous
  Country: US (occurrence: None)
  Receive Date: 20220603
  Receipt Date: 20220603
  Transmission Date: 20220720
  Serious: Yes (Hospitalization, Other)
  Sender: FDA-Public Use
  Company Number: None

PATIENT
  Age: 66 Year
  Sex: Female

DRUGS (1)
  1. CAPECITABINE [Suspect]
     Active Substance: CAPECITABINE
     Dosage: FREQUENCY : TWICE A DAY;?
     Route: 048
     Dates: start: 202001

REACTIONS (7)
  - Dehydration [None]
  - Skin discolouration [None]
  - Sinusitis [None]
  - Bronchitis [None]
  - Ear infection [None]
  - Headache [None]
  - Blood pressure increased [None]

NARRATIVE: CASE EVENT DATE: 20220512
